FAERS Safety Report 5754079-5 (Version None)
Quarter: 2008Q2

REPORT INFORMATION
  Report Type: 
  Country: None (occurrence: None)
  Receive Date: 20080530
  Receipt Date: 20080523
  Transmission Date: 20081010
  Serious: Yes (Other)
  Sender: FDA-Public Use
  Company Number: PHHO2008FR06564

PATIENT
  Weight: 69 kg

DRUGS (7)
  1. ZOLEDRONIC ACID [Suspect]
     Indication: BONE SARCOMA
     Dosage: 4 MG, UNK
     Route: 042
     Dates: start: 20080128, end: 20080422
  2. VITAMIN D [Concomitant]
  3. OROCAL D3 [Concomitant]
  4. DOXORUBICIN HCL [Concomitant]
  5. IFOSFAMIDE [Concomitant]
  6. CISPLATIN [Concomitant]
  7. POTASSIUM GLUCONATE TAB [Concomitant]

REACTIONS (2)
  - HYPOCALCAEMIA [None]
  - TETANY [None]
